FAERS Safety Report 10519805 (Version 2)
Quarter: 2014Q4

REPORT INFORMATION
  Report Type: Spontaneous
  Country: US (occurrence: US)
  Receive Date: 20141015
  Receipt Date: 20141015
  Transmission Date: 20150528
  Serious: No
  Sender: FDA-Public Use
  Company Number: US-MYLANLABS-2014S1012378

PATIENT
  Sex: Female

DRUGS (1)
  1. ACYCLOVIR TABLETS, USP [Suspect]
     Active Substance: ACYCLOVIR
     Indication: HERPES SIMPLEX
     Dosage: 400 MG,BID
     Route: 048
     Dates: start: 2013

REACTIONS (1)
  - Foreign body [Not Recovered/Not Resolved]

NARRATIVE: CASE EVENT DATE: 2013
